FAERS Safety Report 8155154-0 (Version None)
Quarter: 2012Q1

REPORT INFORMATION
  Report Type: 
  Country: None (occurrence: None)
  Receive Date: 20120221
  Receipt Date: 20120208
  Transmission Date: 20120608
  Serious: No
  Sender: FDA-Public Use
  Company Number: JP-ASTRAZENECA-2012SE07598

PATIENT
  Age: 75 Year
  Sex: Female
  Weight: 52 kg

DRUGS (11)
  1. OXYCONTIN [Concomitant]
     Dates: start: 20111129, end: 20111226
  2. FASLODEX [Suspect]
     Indication: BREAST CANCER
     Route: 030
     Dates: start: 20111227, end: 20120110
  3. LOXOPROFEN [Concomitant]
     Indication: CANCER PAIN
     Route: 048
     Dates: start: 20111114, end: 20120114
  4. OXYCONTIN [Concomitant]
     Route: 048
     Dates: start: 20120110, end: 20120124
  5. OXYCONTIN [Concomitant]
     Indication: CANCER PAIN
     Dates: start: 20111115, end: 20111128
  6. OXYCONTIN [Concomitant]
     Route: 048
     Dates: start: 20111227, end: 20120109
  7. SELBEX [Concomitant]
     Indication: ABDOMINAL PAIN UPPER
     Route: 048
     Dates: start: 20111114, end: 20120114
  8. ARIMIDEX [Concomitant]
     Indication: BREAST CANCER
     Route: 048
     Dates: start: 20110318, end: 20120116
  9. ZOMETA [Concomitant]
     Route: 041
     Dates: start: 20101116, end: 20120124
  10. NOVAMIN [Concomitant]
     Indication: NAUSEA
     Route: 048
     Dates: start: 20111114, end: 20120114
  11. MORPHINE [Concomitant]
     Indication: CANCER PAIN
     Route: 048
     Dates: end: 20120124

REACTIONS (1)
  - HYPERSENSITIVITY [None]
